FAERS Safety Report 9684190 (Version 7)
Quarter: 2018Q3

REPORT INFORMATION
  Report Type: Spontaneous
  Country: US (occurrence: US)
  Receive Date: 20131112
  Receipt Date: 20180826
  Transmission Date: 20181010
  Serious: Yes (Hospitalization, Disabling, Other)
  Sender: FDA-Public Use
  Company Number: US-009507513-1205USA04975

PATIENT
  Sex: Female

DRUGS (5)
  1. FOSAMAX [Suspect]
     Active Substance: ALENDRONATE SODIUM
     Indication: OSTEOPOROSIS
     Dosage: 70 MG, UNK
     Route: 048
     Dates: end: 201006
  2. ALENDRONATE SODIUM. [Suspect]
     Active Substance: ALENDRONATE SODIUM
     Indication: OSTEOPOROSIS
     Dosage: 70 MG, UNK
     Route: 048
     Dates: start: 200806
  3. FOSAMAX [Suspect]
     Active Substance: ALENDRONATE SODIUM
     Dosage: UNK
     Route: 048
     Dates: start: 1999
  4. ALENDRONATE SODIUM. [Suspect]
     Active Substance: ALENDRONATE SODIUM
     Indication: OSTEOPOROSIS
     Route: 065
  5. SYNTHROID [Concomitant]
     Active Substance: LEVOTHYROXINE SODIUM
     Indication: HYPOTHYROIDISM
     Route: 065

REACTIONS (59)
  - Wrist fracture [Unknown]
  - Urinary tract infection [Unknown]
  - Dental caries [Unknown]
  - Endodontic procedure [Unknown]
  - Diarrhoea [Unknown]
  - Thyroid disorder [Unknown]
  - Large intestine polyp [Unknown]
  - Aortic arteriosclerosis [Unknown]
  - Procedural haemorrhage [Unknown]
  - Pneumonia [Unknown]
  - Gastrooesophageal reflux disease [Unknown]
  - Fractured sacrum [Recovering/Resolving]
  - Arteriosclerosis [Unknown]
  - Diverticulum intestinal [Unknown]
  - Asthenia [Not Recovered/Not Resolved]
  - Gastric ulcer [Recovering/Resolving]
  - Acute myocardial infarction [Unknown]
  - Cardiac failure congestive [Unknown]
  - Supraventricular tachycardia [Unknown]
  - Bone density decreased [Unknown]
  - Anxiety [Unknown]
  - Fall [Unknown]
  - Appendicitis perforated [Unknown]
  - Intermittent claudication [Recovered/Resolved]
  - Deep vein thrombosis [Unknown]
  - Bronchitis [Recovering/Resolving]
  - Device failure [Recovered/Resolved]
  - Hip fracture [Recovered/Resolved]
  - Osteoporosis [Unknown]
  - Stress urinary incontinence [Unknown]
  - Depression [Recovering/Resolving]
  - Mitral valve calcification [Unknown]
  - Deep vein thrombosis [Unknown]
  - Acquired oesophageal web [Recovering/Resolving]
  - Gastric polyps [Unknown]
  - Packed red blood cell transfusion [Unknown]
  - Abdominal hernia [Unknown]
  - Bladder disorder [Unknown]
  - Coeliac disease [Unknown]
  - Arthritis [Unknown]
  - Rhinitis allergic [Unknown]
  - Gastrooesophageal reflux disease [Unknown]
  - Cardiac murmur [Unknown]
  - Atrial fibrillation [Unknown]
  - Fall [Unknown]
  - Tooth extraction [Unknown]
  - Hyperlipidaemia [Unknown]
  - Oesophageal ulcer [Unknown]
  - Hiatus hernia [Unknown]
  - Fracture nonunion [Recovered/Resolved]
  - Stress fracture [Unknown]
  - Essential hypertension [Not Recovered/Not Resolved]
  - Macular degeneration [Unknown]
  - Aortic stenosis [Unknown]
  - Femur fracture [Recovered/Resolved]
  - Deep vein thrombosis [Unknown]
  - Nausea [Unknown]
  - Vomiting [Unknown]
  - Muscle atrophy [Unknown]

NARRATIVE: CASE EVENT DATE: 200106
